FAERS Safety Report 21842577 (Version 2)
Quarter: 2025Q2

REPORT INFORMATION
  Report Type: Spontaneous
  Country: US (occurrence: US)
  Receive Date: 20230110
  Receipt Date: 20250522
  Transmission Date: 20250716
  Serious: No
  Sender: SANOFI AVENTIS
  Company Number: US-SANOFI-01427969

PATIENT
  Age: 76 Year
  Sex: Female

DRUGS (5)
  1. MULTAQ [Suspect]
     Active Substance: DRONEDARONE
     Indication: Atrial tachycardia
     Dosage: 400 MG, BID (400MG, BID, 400 MG BID AND DRUG TREATMENT DURATION:SHE STARTED MULTAQ ON FRIDAY)
  2. MULTAQ [Suspect]
     Active Substance: DRONEDARONE
     Indication: Atrial fibrillation
  3. DILTIAZEM [Concomitant]
     Active Substance: DILTIAZEM
  4. ZOLPIDEM [Concomitant]
     Active Substance: ZOLPIDEM TARTRATE
     Indication: Sleep disorder
  5. TEMAZEPAM [Concomitant]
     Active Substance: TEMAZEPAM

REACTIONS (3)
  - Sleep disorder [Unknown]
  - Palpitations [Unknown]
  - Drug ineffective [Unknown]
